FAERS Safety Report 15363304 (Version 1)
Quarter: 2018Q3

REPORT INFORMATION
  Report Type: Spontaneous
  Country: US (occurrence: US)
  Receive Date: 20180907
  Receipt Date: 20180907
  Transmission Date: 20181010
  Serious: Yes (Other)
  Sender: FDA-Public Use
  Company Number: US-GILEAD-2018-0361241

PATIENT
  Age: 58 Year
  Sex: Male

DRUGS (3)
  1. DARUNAVIR [Suspect]
     Active Substance: DARUNAVIR
     Indication: HIV INFECTION
     Dosage: UNK
     Route: 065
     Dates: start: 2015
  2. GENVOYA [Suspect]
     Active Substance: COBICISTAT\ELVITEGRAVIR\EMTRICITABINE\TENOFOVIR ALAFENAMIDE FUMARATE
     Indication: HIV INFECTION
     Dosage: UNK
     Route: 065
     Dates: start: 2015
  3. IRON [Concomitant]
     Active Substance: IRON
     Indication: SUPPLEMENTATION THERAPY

REACTIONS (10)
  - Hallucination [Unknown]
  - Renal disorder [Unknown]
  - Intentional dose omission [Recovered/Resolved]
  - Red blood cell count decreased [Unknown]
  - Cognitive disorder [Unknown]
  - Off label use [Not Recovered/Not Resolved]
  - Respiratory distress [Unknown]
  - Dementia [Not Recovered/Not Resolved]
  - Faeces discoloured [Unknown]
  - Cerebrovascular accident [Unknown]
